FAERS Safety Report 8140245-0 (Version None)
Quarter: 2012Q1

REPORT INFORMATION
  Report Type: 
  Country: None (occurrence: None)
  Receive Date: 20120216
  Receipt Date: 20120207
  Transmission Date: 20120608
  Serious: No
  Sender: FDA-Public Use
  Company Number: US-BIOGENIDEC-2012BI005008

PATIENT
  Age: 30 Year
  Sex: Female

DRUGS (1)
  1. AVONEX [Suspect]
     Indication: MULTIPLE SCLEROSIS
     Route: 030
     Dates: start: 20111201

REACTIONS (6)
  - BACK PAIN [None]
  - FATIGUE [None]
  - SINUSITIS [None]
  - NECK PAIN [None]
  - HEADACHE [None]
  - PYREXIA [None]
